FAERS Safety Report 19701232 (Version 2)
Quarter: 2021Q4

REPORT INFORMATION
  Report Type: Report from Study
  Country: US (occurrence: US)
  Receive Date: 20210813
  Receipt Date: 20211028
  Transmission Date: 20220303
  Serious: No
  Sender: FDA-Public Use
  Company Number: NVSC2021US178969

PATIENT
  Sex: Female

DRUGS (1)
  1. ENTRESTO [Suspect]
     Active Substance: SACUBITRIL\VALSARTAN
     Indication: Product used for unknown indication
     Dosage: 24 MG, ONCE4SDO(24/26MG)
     Route: 048

REACTIONS (7)
  - Fluid retention [Recovering/Resolving]
  - Panic disorder [Unknown]
  - Chest discomfort [Unknown]
  - Hypersomnia [Unknown]
  - Fatigue [Unknown]
  - Dizziness [Recovering/Resolving]
  - Inappropriate schedule of product administration [Unknown]
